FAERS Safety Report 5942705-7 (Version None)
Quarter: 2008Q4

REPORT INFORMATION
  Report Type: 
  Country: None (occurrence: None)
  Receive Date: 20081103
  Receipt Date: 20081022
  Transmission Date: 20090506
  Serious: No
  Sender: FDA-Public Use
  Company Number: 20085726

PATIENT
  Sex: Male

DRUGS (1)
  1. LIORESAL [Suspect]
     Indication: MUSCLE SPASTICITY
     Dosage: 1498.1 MCG, DAILY, INTRATHECAL
     Route: 037

REACTIONS (8)
  - CLONUS [None]
  - COLD SWEAT [None]
  - DEVICE CONNECTION ISSUE [None]
  - DRUG WITHDRAWAL SYNDROME [None]
  - MUSCLE RIGIDITY [None]
  - MUSCLE SPASTICITY [None]
  - PALLOR [None]
  - TACHYCARDIA [None]
